FAERS Safety Report 8853330 (Version 1)
Quarter: 2012Q4

REPORT INFORMATION
  Report Type: 
  Country: IN (occurrence: IN)
  Receive Date: 20121022
  Receipt Date: 20121022
  Transmission Date: 20130627
  Serious: Yes (Hospitalization)
  Sender: FDA-Public Use
  Company Number: IN-WATSON-2012-17954

PATIENT
  Age: 80 Year
  Sex: Female

DRUGS (4)
  1. AMLODIPINE (UNKNOWN) [Suspect]
     Indication: HYPERTENSION
     Dosage: 10 mg, daily
     Route: 048
  2. MIDAZOLAM [Suspect]
     Indication: ANXIETY
     Dosage: 1 mg, single
     Route: 042
  3. HYDROCHLOROTHIAZIDE [Suspect]
     Indication: HYPERTENSION
     Dosage: 12.5 mg, daily
     Route: 048
  4. BUPIVACAINE [Suspect]
     Indication: SPINAL ANAESTHESIA
     Dosage: 12.5 mg, single
     Route: 037

REACTIONS (3)
  - Tachycardia [Recovered/Resolved]
  - Drug interaction [Recovered/Resolved]
  - Hypotension [Recovered/Resolved]
